FAERS Safety Report 4635525-7 (Version None)
Quarter: 2005Q2

REPORT INFORMATION
  Report Type: 
  Country: None (occurrence: None)
  Receive Date: 20050414
  Receipt Date: 20050329
  Transmission Date: 20051028
  Serious: Yes (Death)
  Sender: FDA-Public Use
  Company Number: 10749

PATIENT
  Age: 10 Year

DRUGS (1)
  1. METHOTREXATE [Suspect]
     Indication: NON-HODGKIN'S LYMPHOMA
     Dosage: 5 G/M2
     Route: 042

REACTIONS (5)
  - BLOOD CREATINE INCREASED [None]
  - BONE MARROW DEPRESSION [None]
  - HAEMODIALYSIS [None]
  - MULTI-ORGAN FAILURE [None]
  - SEPSIS [None]
